FAERS Safety Report 11146970 (Version 1)
Quarter: 2015Q2

REPORT INFORMATION
  Report Type: Spontaneous
  Country: US (occurrence: US)
  Receive Date: 20150528
  Receipt Date: 20150528
  Transmission Date: 20150821
  Serious: No
  Sender: FDA-Public Use
  Company Number: US-PURDUE-USA-2015-0122643

PATIENT
  Sex: Male

DRUGS (1)
  1. MORPHINE SULFATE (SIMILAR TO NDA 19-516) [Suspect]
     Active Substance: MORPHINE SULFATE
     Indication: PRODUCT USED FOR UNKNOWN INDICATION
     Dosage: UNK MG, UNK
     Route: 048

REACTIONS (9)
  - Pain [Unknown]
  - Cold sweat [Unknown]
  - Mastication disorder [Unknown]
  - Poor peripheral circulation [Unknown]
  - Peripheral swelling [Unknown]
  - Feeding disorder [Unknown]
  - Stress [Unknown]
  - Drug effect decreased [Unknown]
  - Muscle tightness [Unknown]
